FAERS Safety Report 7991135-5 (Version None)
Quarter: 2011Q4

REPORT INFORMATION
  Report Type: 
  Country: None (occurrence: None)
  Receive Date: 20111219
  Receipt Date: 20111214
  Transmission Date: 20120403
  Serious: Yes (Hospitalization, Other)
  Sender: FDA-Public Use
  Company Number: JP-PFIZER INC-2011252476

PATIENT
  Age: 42 Year
  Sex: Male

DRUGS (8)
  1. SOLU-MEDROL [Suspect]
     Dosage: 1 G, 1X/DAY
     Route: 041
     Dates: start: 20090720, end: 20090722
  2. PREDNISOLONE [Concomitant]
     Indication: NEUROMYELITIS OPTICA
     Dosage: 60 MG, 1X/DAY
     Route: 048
  3. SOLU-MEDROL [Suspect]
     Dosage: 2 G, 1X/DAY
     Route: 041
     Dates: start: 20090708, end: 20090710
  4. SOLU-MEDROL [Suspect]
     Dosage: 1 G, 1X/DAY
     Route: 041
     Dates: start: 20090710, end: 20090711
  5. CYCLOSPORINE [Concomitant]
     Dosage: 350 MG, DAILY
  6. SOLU-MEDROL [Suspect]
     Dosage: 0.375 G, 1X/DAY
     Route: 041
     Dates: start: 20090715, end: 20090717
  7. SOLU-MEDROL [Suspect]
     Indication: NEUROMYELITIS OPTICA
     Dosage: 1 G, 1X/DAY
     Route: 041
     Dates: start: 20090630, end: 20090704
  8. SOLU-MEDROL [Suspect]
     Dosage: 0.5 G, 1X/DAY
     Route: 041
     Dates: start: 20090712, end: 20090714

REACTIONS (2)
  - PULMONARY EMBOLISM [None]
  - VENA CAVA THROMBOSIS [None]
